FAERS Safety Report 10229372 (Version 1)
Quarter: 2014Q2

REPORT INFORMATION
  Report Type: Spontaneous
  Country: IE (occurrence: FR)
  Receive Date: 20140611
  Receipt Date: 20140611
  Transmission Date: 20141212
  Serious: Yes (Hospitalization)
  Sender: FDA-Public Use
  Company Number: 2014SP003180

PATIENT
  Age: 87 Year
  Sex: Male

DRUGS (28)
  1. VANCOMYCIN [Suspect]
     Indication: PRODUCT USED FOR UNKNOWN INDICATION
     Route: 042
     Dates: start: 20121003, end: 20121003
  2. CISATRACURIUM BESILATE [Suspect]
     Indication: ANAESTHESIA
     Route: 042
     Dates: start: 20121003, end: 20121003
  3. HEPARIN SODIUM [Suspect]
     Indication: EXTRACORPOREAL CIRCULATION
     Route: 042
     Dates: start: 20121003
  4. HEPARIN SODIUM [Suspect]
     Indication: EXTRACORPOREAL CIRCULATION
     Route: 040
     Dates: start: 20121003
  5. HYDROXYZINE HYDROCHLORIDE [Suspect]
     Indication: ANXIETY
     Route: 048
     Dates: start: 20121002, end: 20121003
  6. ACETYLSALICYLATE LYSINE [Suspect]
     Indication: CARDIOVASCULAR EVENT PROPHYLAXIS
     Route: 048
  7. ACETYLSALICYLATE LYSINE [Suspect]
     Indication: CARDIOVASCULAR EVENT PROPHYLAXIS
  8. GINKGO BILOBA EXTRACT [Suspect]
     Indication: COGNITIVE DISORDER
     Route: 048
     Dates: end: 20121003
  9. PROPOFOL [Suspect]
     Indication: ANAESTHESIA
     Route: 042
     Dates: start: 20121003, end: 20121003
  10. KETAMINE [Suspect]
     Indication: ANAESTHESIA
     Route: 042
     Dates: start: 20121003, end: 20121003
  11. ETOMIDATE [Suspect]
     Indication: ANAESTHESIA
     Route: 042
     Dates: start: 20121003, end: 20121003
  12. SUFENTANIL [Suspect]
     Indication: ANAESTHESIA
     Route: 042
     Dates: start: 20121003, end: 20121003
  13. PROTAMINE SULPHATE [Suspect]
     Indication: PRODUCT USED FOR UNKNOWN INDICATION
     Route: 042
     Dates: start: 20121003, end: 20121003
  14. TRANEXAMIC ACID [Suspect]
     Indication: HAEMORRHAGE PROPHYLAXIS
     Route: 042
     Dates: start: 20121003, end: 20121003
  15. AVODART [Concomitant]
     Dates: end: 20121001
  16. CRESTOR [Concomitant]
     Indication: DYSLIPIDAEMIA
  17. ESOMEPRAZOLE [Concomitant]
     Indication: GASTRODUODENAL ULCER
     Dates: start: 20121003
  18. STILNOX [Concomitant]
     Indication: INSOMNIA
  19. CORDARONE [Concomitant]
  20. LERCANIDIPINE HYDROCHLORIDE [Concomitant]
  21. CLINDAMYCIN PHOSPHATE [Concomitant]
     Dates: end: 20121001
  22. CLINDAMYCIN HYDROCHLORIDE [Concomitant]
     Dates: end: 20121001
  23. CLINDAMYCIN PALMITATE HYDROCHLORIDE [Concomitant]
     Dates: end: 20121001
  24. FLUINDIONE [Concomitant]
     Dates: end: 20120925
  25. OMEPRAZOLE [Concomitant]
     Dates: start: 20121003, end: 20121003
  26. EPHEDRINE RENAUDIN [Concomitant]
     Dates: start: 20121003
  27. NORADRENALINE /00127501/ [Concomitant]
     Dates: start: 20121003
  28. HEMOSTATIC [Concomitant]

REACTIONS (2)
  - Post procedural haemorrhage [Recovered/Resolved]
  - Haemorrhage [Recovered/Resolved]
